FAERS Safety Report 7906149-0 (Version None)
Quarter: 2011Q4

REPORT INFORMATION
  Report Type: 
  Country: None (occurrence: None)
  Receive Date: 20111110
  Receipt Date: 20111104
  Transmission Date: 20120403
  Serious: Yes (Other)
  Sender: FDA-Public Use
  Company Number: US-SANOFI-AVENTIS-2011SA073007

PATIENT
  Age: 78 Year
  Sex: Male

DRUGS (1)
  1. JEVTANA KIT [Suspect]
     Route: 041

REACTIONS (3)
  - HALLUCINATION [None]
  - CONFUSIONAL STATE [None]
  - ABNORMAL BEHAVIOUR [None]
